FAERS Safety Report 8268801-X (Version None)
Quarter: 2012Q2

REPORT INFORMATION
  Report Type: 
  Country: None (occurrence: None)
  Receive Date: 20120409
  Receipt Date: 20120409
  Transmission Date: 20120825
  Serious: Yes (Other)
  Sender: FDA-Public Use
  Company Number: None

PATIENT
  Sex: Female

DRUGS (1)
  1. ZYRTEC [Suspect]
     Indication: HYPERSENSITIVITY
     Dosage: 10 MG OR LESS
     Route: 048
     Dates: start: 20080112, end: 20120324

REACTIONS (3)
  - BURNING SENSATION [None]
  - PRURITUS [None]
  - DRUG WITHDRAWAL SYNDROME [None]
